FAERS Safety Report 4423202-7 (Version None)
Quarter: 2004Q3

REPORT INFORMATION
  Report Type: 
  Country: None (occurrence: None)
  Receive Date: 20040809
  Receipt Date: 20040809
  Transmission Date: 20050211
  Serious: Yes (Hospitalization)
  Sender: FDA-Public Use
  Company Number: None

PATIENT
  Sex: Female
  Weight: 68.9467 kg

DRUGS (10)
  1. GEMCITABINE 200 MG AND 1 GM ELI LILLY [Suspect]
     Indication: PANCREATIC CARCINOMA
     Dosage: 1750 MG WEEKLY X 7 INTRAVENOUS
     Route: 042
     Dates: start: 20040723, end: 20040903
  2. SYNTHROID [Concomitant]
  3. MAXZIDE [Concomitant]
  4. PROTONIX [Concomitant]
  5. PERCOCET [Concomitant]
  6. CENTRUM [Concomitant]
  7. XANAX [Concomitant]
  8. AMBIEN [Concomitant]
  9. GEMCITABINE [Concomitant]
  10. IRESSA [Concomitant]

REACTIONS (4)
  - MOBILITY DECREASED [None]
  - OEDEMA PERIPHERAL [None]
  - PETECHIAE [None]
  - THROMBOCYTOPENIA [None]
